FAERS Safety Report 4544179-X (Version None)
Quarter: 2005Q1

REPORT INFORMATION
  Report Type: 
  Country: None (occurrence: None)
  Receive Date: 20050104
  Receipt Date: 20041210
  Transmission Date: 20050727
  Serious: Yes (Hospitalization)
  Sender: FDA-Public Use
  Company Number: PHBS2004JP16641

PATIENT
  Age: 17 Year
  Sex: Female

DRUGS (2)
  1. TEGRETOL [Suspect]
     Route: 048
  2. TEGRETOL [Suspect]
     Dosage: 1900 MG, ONCE/SINGLE
     Route: 048
     Dates: start: 20041208, end: 20041208

REACTIONS (3)
  - INTENTIONAL MISUSE [None]
  - SOMNOLENCE [None]
  - SUICIDE ATTEMPT [None]
